FAERS Safety Report 9355673 (Version 1)
Quarter: 2013Q2

REPORT INFORMATION
  Report Type: Report from Study
  Country: CL (occurrence: CL)
  Receive Date: 20130619
  Receipt Date: 20130619
  Transmission Date: 20140414
  Serious: Yes (Other)
  Sender: FDA-Public Use
  Company Number: CL-ROCHE-1237880

PATIENT
  Age: 60 Year
  Sex: Female
  Weight: 54 kg

DRUGS (2)
  1. PEGASYS [Suspect]
     Indication: HEPATITIS C
     Route: 058
     Dates: start: 20130301, end: 20130612
  2. RIBAVIRIN [Suspect]
     Indication: HEPATITIS C
     Route: 048
     Dates: start: 20130301, end: 20130612

REACTIONS (4)
  - Eye swelling [Not Recovered/Not Resolved]
  - Skin discolouration [Not Recovered/Not Resolved]
  - Eye pain [Not Recovered/Not Resolved]
  - Visual acuity reduced [Not Recovered/Not Resolved]
